FAERS Safety Report 9321346 (Version 1)
Quarter: 2013Q2

REPORT INFORMATION
  Report Type: Spontaneous
  Country: CO (occurrence: CO)
  Receive Date: 20130531
  Receipt Date: 20130531
  Transmission Date: 20140414
  Serious: Yes (Hospitalization, Other)
  Sender: FDA-Public Use
  Company Number: CO-PFIZER INC-2013166019

PATIENT
  Age: 73 Year
  Sex: Female

DRUGS (1)
  1. LYRICA [Suspect]
     Indication: LIMB INJURY
     Dosage: 75 MG, UNK
     Route: 048
     Dates: start: 201205

REACTIONS (2)
  - Acute myocardial infarction [Unknown]
  - Fatigue [Unknown]
